FAERS Safety Report 15986648 (Version 2)
Quarter: 2019Q1

REPORT INFORMATION
  Report Type: Spontaneous
  Country: CH (occurrence: CH)
  Receive Date: 20190220
  Receipt Date: 20190306
  Transmission Date: 20190418
  Serious: Yes (Death, Other)
  Sender: FDA-Public Use
  Company Number: CH-SEATTLE GENETICS-2018SGN02661

PATIENT
  Sex: Female
  Weight: 51 kg

DRUGS (2)
  1. ADCETRIS [Suspect]
     Active Substance: BRENTUXIMAB VEDOTIN
     Dosage: 92 MILLIGRAM
     Route: 065
     Dates: start: 20180913, end: 20181026
  2. ADCETRIS [Suspect]
     Active Substance: BRENTUXIMAB VEDOTIN
     Indication: B-CELL LYMPHOMA
     Dosage: 92 UNK, UNK
     Route: 065
     Dates: start: 20180913

REACTIONS (3)
  - Off label use [Unknown]
  - Death [Fatal]
  - Disease progression [Unknown]

NARRATIVE: CASE EVENT DATE: 20181120
